FAERS Safety Report 5308886-3 (Version None)
Quarter: 2007Q1

REPORT INFORMATION
  Report Type: 
  Country: None (occurrence: None)
  Receive Date: 20070201
  Receipt Date: 20061227
  Transmission Date: 20070707
  Serious: No
  Sender: FDA-Public Use
  Company Number: 2006PV027477

PATIENT
  Age: 60 Year
  Sex: Female
  Weight: 104.3273 kg

DRUGS (9)
  1. BYETTA [Suspect]
     Indication: DIABETES MELLITUS NON-INSULIN-DEPENDENT
     Dosage: 5 MCG; BID; SC
     Route: 058
     Dates: start: 20061101
  2. LANTUS [Concomitant]
  3. METFORMIN HCL [Concomitant]
  4. CAPTOPRIL [Concomitant]
  5. CYMBALTA [Concomitant]
  6. THYROID MEDICINE [Concomitant]
  7. ENABLEX [Concomitant]
  8. VICODIN ES [Concomitant]
  9. NEXIUM [Concomitant]

REACTIONS (3)
  - NAUSEA [None]
  - VERTIGO [None]
  - WEIGHT DECREASED [None]
